FAERS Safety Report 9400401 (Version 1)
Quarter: 2013Q3

REPORT INFORMATION
  Report Type: Spontaneous
  Country: GR (occurrence: GR)
  Receive Date: 20130715
  Receipt Date: 20130715
  Transmission Date: 20140515
  Serious: Yes (Death, Other)
  Sender: FDA-Public Use
  Company Number: GR-WATSON-2013-11964

PATIENT
  Age: 84 Year
  Sex: Male

DRUGS (8)
  1. DOXORUBICIN (UNKNOWN) [Suspect]
     Indication: PERIPHERAL T-CELL LYMPHOMA UNSPECIFIED
     Dosage: UNK
     Route: 065
  2. VINCRISTINE (UNKNOWN) [Suspect]
  3. PREDNISONE (UNKNOWN) [Suspect]
     Indication: PERIPHERAL T-CELL LYMPHOMA UNSPECIFIED
     Dosage: UNK
     Route: 065
  4. CYCLOPHOSPHAMIDE (UNKNOWN) [Suspect]
     Indication: PERIPHERAL T-CELL LYMPHOMA UNSPECIFIED
     Dosage: UNK
     Route: 065
  5. CYCLOSPORINE (UNKNOWN) [Suspect]
     Indication: PERIPHERAL T-CELL LYMPHOMA UNSPECIFIED
     Dosage: 100 MG, DAILY
     Route: 065
  6. CYCLOSPORINE (UNKNOWN) [Suspect]
     Dosage: 3 MG/KG, UNK
     Route: 065
  7. PREDNISOLONE (UNKNOWN) [Suspect]
     Indication: PERIPHERAL T-CELL LYMPHOMA UNSPECIFIED
     Dosage: 5 MG, UNK
     Route: 065
  8. PREDNISOLONE (UNKNOWN) [Suspect]
     Dosage: 5 MG, UNK
     Route: 065

REACTIONS (2)
  - Respiratory tract infection [Fatal]
  - Pyoderma gangrenosum [Recovering/Resolving]
